FAERS Safety Report 6765842-6 (Version None)
Quarter: 2010Q2

REPORT INFORMATION
  Report Type: 
  Country: None (occurrence: None)
  Receive Date: 20100611
  Receipt Date: 20100601
  Transmission Date: 20101027
  Serious: Yes (Other)
  Sender: FDA-Public Use
  Company Number: PHHY2010US35663

PATIENT
  Sex: Male
  Weight: 75.91 kg

DRUGS (9)
  1. EXJADE [Suspect]
     Indication: IRON METABOLISM DISORDER
     Dosage: 750 MG, DAILY
     Route: 048
     Dates: start: 20091009
  2. ZANTAC [Concomitant]
  3. PREDNISONE [Concomitant]
  4. PRAVASTATIN [Concomitant]
  5. AMOXICILLIN [Concomitant]
  6. METFORMIN [Concomitant]
  7. GLIMEPIRIDE [Concomitant]
  8. ATENOLOL [Concomitant]
  9. LEVOTHYROXINE SODIUM [Concomitant]

REACTIONS (1)
  - LENTIGO [None]
